FAERS Safety Report 8419330-1 (Version None)
Quarter: 2012Q2

REPORT INFORMATION
  Report Type: 
  Country: None (occurrence: None)
  Receive Date: 20120607
  Receipt Date: 20120529
  Transmission Date: 20120825
  Serious: Yes (Hospitalization)
  Sender: FDA-Public Use
  Company Number: FR-JNJFOC-20120601376

PATIENT
  Age: 4 Decade
  Sex: Male

DRUGS (3)
  1. NORVIR [Suspect]
     Indication: HIV INFECTION
     Route: 065
     Dates: start: 20120514, end: 20120529
  2. PREZISTA [Suspect]
     Indication: HIV INFECTION
     Route: 065
     Dates: start: 20120514, end: 20120529
  3. TRUVADA [Suspect]
     Indication: HIV INFECTION
     Route: 065
     Dates: start: 20120514, end: 20120529

REACTIONS (3)
  - RESPIRATORY DISORDER [None]
  - RASH MACULO-PAPULAR [None]
  - FATIGUE [None]
